FAERS Safety Report 23423121 (Version 1)
Quarter: 2024Q1

REPORT INFORMATION
  Report Type: Report from Study
  Country: US (occurrence: US)
  Receive Date: 20240119
  Receipt Date: 20240119
  Transmission Date: 20240410
  Serious: Yes (Death, Hospitalization, Other)
  Sender: FDA-Public Use
  Company Number: US-ABBVIE-5595760

PATIENT
  Sex: Female
  Weight: 38.555 kg

DRUGS (1)
  1. CREON [Suspect]
     Active Substance: PANCRELIPASE AMYLASE\PANCRELIPASE LIPASE\PANCRELIPASE PROTEASE
     Indication: Pancreatitis
     Dosage: THREE TIMES A DAY BEFORE EACH MEAL?FORM STRENGTH: 24000 UNIT
     Route: 048
     Dates: start: 2020, end: 20240102

REACTIONS (10)
  - Neuroendocrine carcinoma [Fatal]
  - Pain [Recovering/Resolving]
  - Urinary tract infection [Recovered/Resolved]
  - Feeding disorder [Not Recovered/Not Resolved]
  - Decreased appetite [Not Recovered/Not Resolved]
  - Anaemia [Recovering/Resolving]
  - Renal impairment [Recovering/Resolving]
  - Dehydration [Recovered/Resolved]
  - Delirium [Recovered/Resolved]
  - Discomfort [Unknown]

NARRATIVE: CASE EVENT DATE: 20210101
